FAERS Safety Report 6934463-4 (Version None)
Quarter: 2010Q3

REPORT INFORMATION
  Report Type: 
  Country: None (occurrence: None)
  Receive Date: 20100820
  Receipt Date: 20100813
  Transmission Date: 20110219
  Serious: Yes (Other)
  Sender: FDA-Public Use
  Company Number: SE-B.I. PHARMACEUTICALS,INC./RIDGEFIELD-2010-SW-00252SW

PATIENT
  Sex: Female

DRUGS (2)
  1. SIFROL TAB [Suspect]
     Indication: RESTLESS LEGS SYNDROME
     Dosage: 0.18 MG
     Dates: start: 20050101
  2. SIFROL TAB [Suspect]
     Dosage: 1.05 MG

REACTIONS (2)
  - DEPRESSION [None]
  - PATHOLOGICAL GAMBLING [None]
